FAERS Safety Report 6779354-7 (Version None)
Quarter: 2010Q2

REPORT INFORMATION
  Report Type: 
  Country: None (occurrence: None)
  Receive Date: 20100618
  Receipt Date: 20100608
  Transmission Date: 20101027
  Serious: Yes (Other)
  Sender: FDA-Public Use
  Company Number: PHHY2009US56237

PATIENT
  Age: 62 Year
  Sex: Male
  Weight: 74.3 kg

DRUGS (4)
  1. GLEEVEC [Suspect]
     Indication: GASTROINTESTINAL STROMAL TUMOUR
     Dosage: 400 MG DAILY
     Route: 048
     Dates: start: 20090925
  2. NEXIUM [Concomitant]
  3. TOPROL-XL [Concomitant]
  4. M.V.I. [Concomitant]

REACTIONS (19)
  - ABDOMINAL PAIN UPPER [None]
  - ANAEMIA [None]
  - ARTHRALGIA [None]
  - ASTHENIA [None]
  - BLOOD PHOSPHORUS DECREASED [None]
  - CATARACT [None]
  - CATARACT OPERATION [None]
  - CONJUNCTIVAL HAEMORRHAGE [None]
  - DIARRHOEA [None]
  - EYE HAEMORRHAGE [None]
  - EYE PAIN [None]
  - FATIGUE [None]
  - HEAT RASH [None]
  - HEPATIC HAEMORRHAGE [None]
  - HYPOAESTHESIA [None]
  - MYALGIA [None]
  - NAUSEA [None]
  - PARAESTHESIA [None]
  - RASH [None]
